FAERS Safety Report 4305988-5 (Version None)
Quarter: 2004Q1

REPORT INFORMATION
  Report Type: 
  Country: None (occurrence: None)
  Receive Date: 20040225
  Receipt Date: 20040218
  Transmission Date: 20041129
  Serious: Yes (Hospitalization)
  Sender: FDA-Public Use
  Company Number: 2004199830CA

PATIENT
  Age: 62 Year
  Sex: Male

DRUGS (2)
  1. ZYVOXAM (LINEZOLID) TABLET [Suspect]
     Dosage: 600 MG, BID, ORAL
     Route: 048
     Dates: start: 20040201
  2. GLYBURIDE [Concomitant]

REACTIONS (1)
  - HYPOGLYCAEMIA [None]
